FAERS Safety Report 6524795-6 (Version None)
Quarter: 2010Q1

REPORT INFORMATION
  Report Type: 
  Country: None (occurrence: None)
  Receive Date: 20100104
  Receipt Date: 20091223
  Transmission Date: 20100710
  Serious: Yes (Other)
  Sender: FDA-Public Use
  Company Number: US-ELI_LILLY_AND_COMPANY-US200911006226

PATIENT
  Sex: Female
  Weight: 74.83 kg

DRUGS (14)
  1. BYETTA [Suspect]
     Indication: TYPE 2 DIABETES MELLITUS
     Dosage: 5 UG, 2/D
     Route: 058
     Dates: start: 20080101, end: 20080101
  2. BYETTA [Suspect]
     Dosage: 10 UG, 2/D
     Route: 058
     Dates: start: 20080101
  3. BYETTA [Suspect]
     Dosage: 10 UG, 2/D
     Route: 058
  4. GLIMEPIRIDE [Concomitant]
     Indication: TYPE 2 DIABETES MELLITUS
     Dosage: 4 MG, 2/D
  5. METFORMIN [Concomitant]
     Indication: TYPE 2 DIABETES MELLITUS
     Dosage: 1000 MG, 2/D
  6. LANTUS [Concomitant]
     Indication: TYPE 2 DIABETES MELLITUS
     Dosage: 16 U, EACH EVENING
     Route: 058
  7. LANTUS [Concomitant]
     Dosage: UNK, UNKNOWN
     Route: 058
  8. ATENOLOL [Concomitant]
     Indication: BLOOD PRESSURE
     Dosage: 100 MG, 2/D
  9. ATACAND [Concomitant]
     Indication: BLOOD PRESSURE
     Dosage: 16 MG, DAILY (1/D)
  10. SPIRONOLACTONE [Concomitant]
     Indication: BLOOD PRESSURE
     Dosage: 25 MG, DAILY (1/D)
  11. LIPITOR [Concomitant]
     Indication: BLOOD CHOLESTEROL
     Dosage: 80 MG, UNKNOWN
  12. CALCIUM [Concomitant]
     Dosage: UNK, DAILY (1/D)
  13. GLUCOSAMINE W/CHONDROITIN [Concomitant]
     Indication: ARTHROPATHY
     Dosage: 250 MG, UNKNOWN
  14. ASPIRIN [Concomitant]
     Dosage: UNK, DAILY (1/D)

REACTIONS (7)
  - BLOOD GLUCOSE INCREASED [None]
  - BREAST CANCER RECURRENT [None]
  - LYMPHOEDEMA [None]
  - OFF LABEL USE [None]
  - PAIN IN EXTREMITY [None]
  - PARAESTHESIA [None]
  - STRESS [None]
